FAERS Safety Report 5659780-X (Version None)
Quarter: 2008Q1

REPORT INFORMATION
  Report Type: 
  Country: None (occurrence: None)
  Receive Date: 20080311
  Receipt Date: 20070716
  Transmission Date: 20080703
  Serious: No
  Sender: FDA-Public Use
  Company Number: US-BAYER-200712261BCC

PATIENT
  Age: 46 Year
  Sex: Male
  Weight: 77 kg

DRUGS (5)
  1. ALEVE [Suspect]
     Indication: ARTHRALGIA
     Route: 048
     Dates: start: 20070201
  2. ALEVE [Suspect]
     Route: 048
  3. WELLBUTRIN [Concomitant]
  4. MULTI-VITAMIN [Concomitant]
  5. PUBLIX ASPIRIN [Concomitant]

REACTIONS (1)
  - ABDOMINAL PAIN UPPER [None]
